FAERS Safety Report 9236516 (Version 34)
Quarter: 2015Q3

REPORT INFORMATION
  Report Type: Report from Study
  Country: CA (occurrence: CA)
  Receive Date: 20130417
  Receipt Date: 20150916
  Transmission Date: 20151125
  Serious: Yes (Other)
  Sender: FDA-Public Use
  Company Number: CA-ROCHE-1180614

PATIENT
  Age: 59 Year
  Sex: Female
  Weight: 63 kg

DRUGS (5)
  1. ACTEMRA [Suspect]
     Active Substance: TOCILIZUMAB
     Route: 042
     Dates: start: 20140219
  2. ACTEMRA [Suspect]
     Active Substance: TOCILIZUMAB
     Route: 042
     Dates: start: 20140606
  3. RITUXAN [Suspect]
     Active Substance: RITUXIMAB
     Indication: RHEUMATOID ARTHRITIS
     Route: 042
     Dates: start: 20120507, end: 20120530
  4. ACTEMRA [Suspect]
     Active Substance: TOCILIZUMAB
     Indication: RHEUMATOID ARTHRITIS
     Route: 042
     Dates: start: 20121219
  5. ACTEMRA [Suspect]
     Active Substance: TOCILIZUMAB
     Route: 042
     Dates: start: 20150616

REACTIONS (36)
  - Influenza like illness [Recovered/Resolved]
  - Tooth fracture [Unknown]
  - Oxygen saturation decreased [Unknown]
  - Musculoskeletal pain [Unknown]
  - Arthralgia [Recovering/Resolving]
  - Upper respiratory tract infection [Recovered/Resolved]
  - Drug effect decreased [Unknown]
  - Tooth disorder [Unknown]
  - Musculoskeletal stiffness [Not Recovered/Not Resolved]
  - Beta haemolytic streptococcal infection [Recovered/Resolved]
  - Sinusitis [Recovering/Resolving]
  - Infection [Recovered/Resolved]
  - Herpes zoster [Recovered/Resolved]
  - Tooth disorder [Recovered/Resolved]
  - Feeling hot [Recovering/Resolving]
  - Cough [Recovering/Resolving]
  - Haematoma [Recovered/Resolved]
  - Arthralgia [Unknown]
  - Gait disturbance [Recovering/Resolving]
  - Tooth abscess [Recovered/Resolved]
  - Oral herpes [Recovered/Resolved]
  - Weight decreased [Unknown]
  - Infection [Unknown]
  - Laceration [Recovered/Resolved]
  - Myalgia [Recovering/Resolving]
  - Abscess limb [Recovered/Resolved]
  - Increased tendency to bruise [Unknown]
  - Arthritis [Not Recovered/Not Resolved]
  - Joint stiffness [Unknown]
  - Articular calcification [Unknown]
  - Infusion related reaction [Unknown]
  - Oxygen saturation decreased [Unknown]
  - Wound [Recovered/Resolved]
  - Arthralgia [Unknown]
  - Lower respiratory tract infection [Recovered/Resolved]
  - Procedural haemorrhage [Recovering/Resolving]

NARRATIVE: CASE EVENT DATE: 2013
